FAERS Safety Report 5174310-7 (Version None)
Quarter: 2006Q4

REPORT INFORMATION
  Report Type: 
  Country: None (occurrence: None)
  Receive Date: 20061206
  Receipt Date: 20061128
  Transmission Date: 20070319
  Serious: Yes (Hospitalization, Disabling)
  Sender: FDA-Public Use
  Company Number: 163-21880-06090732

PATIENT
  Age: 75 Year
  Sex: Female

DRUGS (1)
  1. REVLIMID [Suspect]
     Indication: MYELODYSPLASTIC SYNDROME
     Dosage: 5 MG, EVERY OTHER DAY, ORAL
     Route: 048
     Dates: start: 20060918, end: 20060929

REACTIONS (4)
  - ABASIA [None]
  - ARTHRALGIA [None]
  - OVARIAN CANCER [None]
  - PANCYTOPENIA [None]
